FAERS Safety Report 4318829-7 (Version None)
Quarter: 2004Q1

REPORT INFORMATION
  Report Type: 
  Country: None (occurrence: None)
  Receive Date: 20040315
  Receipt Date: 20040220
  Transmission Date: 20041129
  Serious: No
  Sender: FDA-Public Use
  Company Number: A04200400182

PATIENT
  Sex: Male

DRUGS (1)
  1. PLAVIX [Suspect]
     Dosage: ORAL     A FEW YEARS
     Route: 048

REACTIONS (4)
  - GAMMA-GLUTAMYLTRANSFERASE INCREASED [None]
  - NUCLEAR MAGNETIC RESONANCE IMAGING ABDOMINAL ABNORMAL [None]
  - PANCREATITIS [None]
  - PANCREATOLITHIASIS [None]
